FAERS Safety Report 7997153-5 (Version None)
Quarter: 2011Q4

REPORT INFORMATION
  Report Type: 
  Country: None (occurrence: None)
  Receive Date: 20111221
  Receipt Date: 20111212
  Transmission Date: 20120403
  Serious: Yes (Other)
  Sender: FDA-Public Use
  Company Number: US-JNJFOC-20111205374

PATIENT
  Sex: Female
  Weight: 61.69 kg

DRUGS (5)
  1. ULTRAM [Suspect]
     Indication: FIBROMYALGIA
     Dosage: 50MG + 50MG THREE TIMES DAILY
     Route: 048
     Dates: start: 19960101
  2. KLONOPIN [Concomitant]
     Indication: SLEEP DISORDER THERAPY
     Dosage: DAILY AT BEDTIME
     Route: 065
     Dates: start: 19960101
  3. ULTRAM [Suspect]
     Dosage: THREE TIMES DAILY
     Route: 048
  4. UNSPECIFIED ANTIDEPRESSANTS [Suspect]
     Indication: PRODUCT USED FOR UNKNOWN INDICATION
     Route: 065
  5. TRAMADOL HCL [Suspect]
     Indication: FIBROMYALGIA
     Route: 065

REACTIONS (8)
  - PRURITUS [None]
  - PSYCHOMOTOR HYPERACTIVITY [None]
  - NERVOUSNESS [None]
  - TREATMENT NONCOMPLIANCE [None]
  - MALAISE [None]
  - DEPRESSION [None]
  - NAUSEA [None]
  - PRODUCT QUALITY ISSUE [None]
